FAERS Safety Report 4903499-7 (Version None)
Quarter: 2006Q1

REPORT INFORMATION
  Report Type: 
  Country: None (occurrence: None)
  Receive Date: 20060203
  Receipt Date: 20060127
  Transmission Date: 20060701
  Serious: Yes (Life-Threatening)
  Sender: FDA-Public Use
  Company Number: 200610044BYL

PATIENT
  Age: 77 Year
  Sex: Male

DRUGS (8)
  1. ASPIRIN [Suspect]
     Indication: ANGINA PECTORIS
     Dosage: 100 MG, QD, ORAL
     Route: 048
     Dates: start: 20030403, end: 20060106
  2. ASPIRIN [Suspect]
     Indication: CEREBRAL INFARCTION
     Dosage: 100 MG, QD, ORAL
     Route: 048
     Dates: start: 20030403, end: 20060106
  3. LANIRAPID [Concomitant]
  4. CLARITHROMYCIN [Concomitant]
  5. NIVADIL [Concomitant]
  6. SIGMART [Concomitant]
  7. ASPENON [Concomitant]
  8. BUFFERIN [Concomitant]

REACTIONS (4)
  - AORTIC ANEURYSM [None]
  - AORTIC DISSECTION [None]
  - ENTERITIS [None]
  - PERIPHERAL ARTERY DISSECTION [None]
